FAERS Safety Report 8756894 (Version 2)
Quarter: 2012Q4

REPORT INFORMATION
  Report Type: Report from Study
  Country: JP (occurrence: JP)
  Receive Date: 20120828
  Receipt Date: 20121030
  Transmission Date: 20130627
  Serious: Yes (Other)
  Sender: FDA-Public Use
  Company Number: JP-VERTEX PHARMACEUTICAL INC.-2012-019869

PATIENT
  Age: 68 Year
  Sex: Female

DRUGS (17)
  1. VX-950 [Suspect]
     Indication: HEPATITIS C
     Dosage: 1500 mg, qd
     Route: 048
     Dates: start: 20120705, end: 20120720
  2. VX-950 [Suspect]
     Dosage: 750 mg, qd
     Route: 048
     Dates: start: 20120721, end: 20120725
  3. VX-950 [Suspect]
     Dosage: 1500 mg, qd
     Route: 048
     Dates: start: 20120726, end: 20120728
  4. VX-950 [Suspect]
     Dosage: 750 mg, qd
     Route: 048
     Dates: start: 20120729
  5. VX-950 [Suspect]
     Dosage: 1250 mg, qd
     Route: 048
     Dates: end: 20120903
  6. VX-950 [Suspect]
     Dosage: 750 UNK, UNK
     Route: 048
     Dates: start: 20120904, end: 20120910
  7. RIBAVIRIN [Suspect]
     Indication: HEPATITIS C
     Dosage: 200 mg, qd
     Route: 048
     Dates: start: 20120705, end: 20120712
  8. RIBAVIRIN [Suspect]
     Dosage: 200 mg, qd
     Route: 048
     Dates: start: 20120713, end: 20120726
  9. RIBAVIRIN [Suspect]
     Dosage: 200 mg, qd
     Route: 048
     Dates: start: 20120731, end: 20120910
  10. RIBAVIRIN [Suspect]
     Dosage: 200 mg, qd
     Route: 048
     Dates: start: 20120927
  11. PEGINTERFERON ALFA-2B [Suspect]
     Indication: HEPATITIS C
     Dosage: 1.5 �g/kg, UNK
     Route: 058
     Dates: start: 20120705, end: 20120909
  12. PEGINTERFERON ALFA-2B [Suspect]
     Dosage: 1.5 �g/kg, UNK
     Route: 058
     Dates: start: 20120927
  13. EQUA [Concomitant]
     Dosage: 100 mg, qd
     Route: 048
  14. ZETIA [Concomitant]
     Dosage: 10 mg, qd
     Route: 048
  15. CALBLOCK [Concomitant]
     Dosage: 16 mg, qd
     Route: 048
  16. MICARDIS [Concomitant]
     Dosage: 40 mg, qd
     Route: 048
  17. FESIN [Concomitant]
     Dosage: 40 mg, qd
     Route: 042
     Dates: end: 20120918

REACTIONS (1)
  - Blood creatinine increased [Not Recovered/Not Resolved]
